FAERS Safety Report 6742053-1 (Version None)
Quarter: 2010Q2

REPORT INFORMATION
  Report Type: 
  Country: None (occurrence: None)
  Receive Date: 20100526
  Receipt Date: 20100517
  Transmission Date: 20101027
  Serious: Yes (Other)
  Sender: FDA-Public Use
  Company Number: NL-TEVA-235141ISR

PATIENT
  Age: 67 Year
  Sex: Male

DRUGS (7)
  1. TAMSULOSIN HCL [Suspect]
     Indication: DYSURIA
  2. INSULIN [Interacting]
  3. METFORMIN HYDROCHLORIDE [Concomitant]
  4. ATORVASTATIN [Concomitant]
  5. ENALAPRIL [Concomitant]
  6. SILDENAFIL [Concomitant]
  7. TELMISARTAN [Concomitant]

REACTIONS (2)
  - DRUG INTERACTION [None]
  - HYPERGLYCAEMIA [None]
